FAERS Safety Report 16280419 (Version 1)
Quarter: 2019Q2

REPORT INFORMATION
  Report Type: Report from Study
  Country: DE (occurrence: DE)
  Receive Date: 20190507
  Receipt Date: 20190507
  Transmission Date: 20190711
  Serious: Yes (Hospitalization, Other)
  Sender: FDA-Public Use
  Company Number: DE-ROCHE-2307910

PATIENT
  Age: 69 Year
  Sex: Female

DRUGS (4)
  1. BEVACIZUMAB. [Suspect]
     Active Substance: BEVACIZUMAB
     Indication: OVARIAN CANCER
     Dosage: 15MG/KG, D1?ON 02/APR/2019, THE PATIENT RECEIVED LAST DOSE OF BEVACIZUMAB BEFORE THE EVENTS (DIARRHE
     Route: 042
  2. ATEZOLIZUMAB. [Suspect]
     Active Substance: ATEZOLIZUMAB
     Indication: OVARIAN CANCER
     Dosage: 1200 MILLIGRAM EVERY 1 CYCLE(S)?ON 02/APR/2019, THE PATIENT RECEIVED LAST DOSE OF ATEZOLIZUMAB BEFOR
     Route: 042
     Dates: start: 20190108, end: 20190402
  3. CARBOPLATIN. [Suspect]
     Active Substance: CARBOPLATIN
     Indication: OVARIAN CANCER
     Dosage: ON 02/APR/2019, THE PATIENT RECEIVED LAST DOSE OF CARBOPLATIN BEFORE THE EVENTS (DIARRHEA AND BLOODY
     Route: 042
  4. PACLITAXEL. [Suspect]
     Active Substance: PACLITAXEL
     Indication: OVARIAN CANCER
     Dosage: ON 02/APR/2019, THE PATIENT RECEIVED LAST DOSE OF PACLITAXEL BEFORE THE EVENTS (DIARRHEA AND BLOODY
     Route: 042

REACTIONS (2)
  - Diarrhoea [Not Recovered/Not Resolved]
  - Haematochezia [Not Recovered/Not Resolved]

NARRATIVE: CASE EVENT DATE: 20190409
